FAERS Safety Report 8193268-X (Version None)
Quarter: 2012Q1

REPORT INFORMATION
  Report Type: 
  Country: None (occurrence: None)
  Receive Date: 20120308
  Receipt Date: 20120229
  Transmission Date: 20120608
  Serious: Yes (Hospitalization, Other)
  Sender: FDA-Public Use
  Company Number: CA-JNJFOC-20120301310

PATIENT
  Sex: Female
  Weight: 92.2 kg

DRUGS (8)
  1. GABAPENTIN [Concomitant]
     Route: 065
  2. IMOVANE [Concomitant]
     Route: 065
  3. REMICADE [Suspect]
     Indication: CROHN'S DISEASE
     Route: 042
     Dates: start: 20100401
  4. CLONAZEPAM [Concomitant]
     Route: 065
  5. IMURAN [Concomitant]
     Route: 065
  6. PAROSEPTINE [Concomitant]
     Route: 065
  7. RISPERDAL [Concomitant]
     Route: 065
  8. SALAZINE [Concomitant]
     Route: 065

REACTIONS (3)
  - POST PROCEDURAL INFECTION [None]
  - KNEE OPERATION [None]
  - STAPHYLOCOCCAL INFECTION [None]
